FAERS Safety Report 5918477-9 (Version None)
Quarter: 2008Q4

REPORT INFORMATION
  Report Type: 
  Country: None (occurrence: None)
  Receive Date: 20081015
  Receipt Date: 20081008
  Transmission Date: 20090506
  Serious: Yes (Death, Life-Threatening)
  Sender: FDA-Public Use
  Company Number: JP-BRISTOL-MYERS SQUIBB COMPANY-14369292

PATIENT
  Age: 23 Year
  Sex: Male

DRUGS (5)
  1. EFAVIRENZ [Suspect]
     Indication: HIV INFECTION
     Route: 048
     Dates: start: 20080322, end: 20080623
  2. DOXIL [Suspect]
     Indication: KAPOSI'S SARCOMA
     Dosage: ROUTE = INJ. FORM = INJ. 34MG/1X GIVEN ON 12MAR08, 02APR08, 21APR08, AND 04JUN08.
     Dates: start: 20080225, end: 20080225
  3. EPIVIR [Concomitant]
     Dates: start: 20080201, end: 20080623
  4. KALETRA [Concomitant]
     Dates: start: 20080201, end: 20080321
  5. ZERIT [Concomitant]
     Dates: start: 20080201, end: 20080623

REACTIONS (1)
  - GRANULOCYTOPENIA [None]
